FAERS Safety Report 5305871-2 (Version None)
Quarter: 2007Q1

REPORT INFORMATION
  Report Type: 
  Country: None (occurrence: None)
  Receive Date: 20070201
  Receipt Date: 20061108
  Transmission Date: 20070707
  Serious: No
  Sender: FDA-Public Use
  Company Number: 2006PV024859

PATIENT
  Age: 42 Year
  Sex: Female

DRUGS (9)
  1. BYETTA [Suspect]
     Indication: DIABETES MELLITUS NON-INSULIN-DEPENDENT
     Dosage: SEE IMAGE
     Route: 058
     Dates: start: 20060801, end: 20060801
  2. BYETTA [Suspect]
     Indication: DIABETES MELLITUS NON-INSULIN-DEPENDENT
     Dosage: SEE IMAGE
     Route: 058
     Dates: start: 20060801, end: 20061104
  3. BYETTA [Suspect]
     Indication: DIABETES MELLITUS NON-INSULIN-DEPENDENT
     Dosage: SEE IMAGE
     Route: 058
     Dates: start: 20061108
  4. METHOCARBAMOL [Suspect]
     Indication: BACK PAIN
     Dosage: 750 MG; PRN; PO
     Route: 048
     Dates: start: 20061104, end: 20061104
  5. METHOCARBAMOL [Suspect]
     Indication: MUSCLE STRAIN
     Dosage: 750 MG; PRN; PO
     Route: 048
     Dates: start: 20061104, end: 20061104
  6. METFORMIN HCL [Concomitant]
  7. ACTOS [Concomitant]
  8. LIPITOR [Concomitant]
  9. SYNTHROID [Concomitant]

REACTIONS (4)
  - BACK INJURY [None]
  - BACK PAIN [None]
  - FEELING ABNORMAL [None]
  - INJECTION SITE URTICARIA [None]
